FAERS Safety Report 18334488 (Version 3)
Quarter: 2020Q4

REPORT INFORMATION
  Report Type: Spontaneous
  Country: US (occurrence: US)
  Receive Date: 20201001
  Receipt Date: 20201216
  Transmission Date: 20210113
  Serious: Yes (Other)
  Sender: FDA-Public Use
  Company Number: US-PFIZER INC-2020375134

PATIENT
  Age: 21 Year
  Sex: Female

DRUGS (8)
  1. DEMEROL [Suspect]
     Active Substance: MEPERIDINE HYDROCHLORIDE
     Dosage: 75 MG
     Route: 030
  2. THORAZINE [Concomitant]
     Active Substance: CHLORPROMAZINE
     Dosage: 25 MG
     Route: 048
  3. TYLENOL [Concomitant]
     Active Substance: ACETAMINOPHEN
     Dosage: 650 MG
     Route: 048
  4. AMPHOTERICIN [Concomitant]
     Active Substance: AMPHOTERICIN B
     Dosage: 20 MG, DAILY
     Route: 042
  5. BENADRYL [Concomitant]
     Active Substance: DIPHENHYDRAMINE HYDROCHLORIDE
     Indication: SEDATION
     Dosage: 25 MG
     Route: 048
  6. DEMEROL [Suspect]
     Active Substance: MEPERIDINE HYDROCHLORIDE
     Dosage: UNK (27 DOSES OF 100-150 MG IM MEPERIDINE OVER FOUR DAYS)
     Route: 030
  7. DEMEROL [Suspect]
     Active Substance: MEPERIDINE HYDROCHLORIDE
     Dosage: 75 MG, AS NEEDED (75 MG (Q 4-6 HRS) PRN
     Route: 030
  8. VISTARIL [HYDROXYZINE HYDROCHLORIDE] [Concomitant]
     Dosage: 15 MG, AS NEEDED (Q4-6 HRS) PRN
     Route: 030

REACTIONS (3)
  - Neurotoxicity [Unknown]
  - Muscle twitching [Recovering/Resolving]
  - Myoclonus [Recovering/Resolving]
